FAERS Safety Report 21299670 (Version 3)
Quarter: 2022Q4

REPORT INFORMATION
  Report Type: Spontaneous
  Country: US (occurrence: US)
  Receive Date: 20220906
  Receipt Date: 20221208
  Transmission Date: 20230112
  Serious: Yes (Hospitalization)
  Sender: FDA-Public Use
  Company Number: US-NIPPON SHINYAKU-NIP-2022-000046

PATIENT

DRUGS (2)
  1. VILTOLARSEN [Suspect]
     Active Substance: VILTOLARSEN
     Indication: Duchenne muscular dystrophy
     Dosage: UNK, QWK
     Route: 042
     Dates: end: 20220806
  2. VILTOLARSEN [Suspect]
     Active Substance: VILTOLARSEN
     Dosage: UNK, QWK
     Route: 042
     Dates: start: 202209

REACTIONS (1)
  - Hypotension [Recovered/Resolved]

NARRATIVE: CASE EVENT DATE: 20220809
